FAERS Safety Report 5133159-1 (Version None)
Quarter: 2006Q4

REPORT INFORMATION
  Report Type: 
  Country: None (occurrence: None)
  Receive Date: 20061017
  Receipt Date: 20060927
  Transmission Date: 20070319
  Serious: Yes (Other)
  Sender: FDA-Public Use
  Company Number: CA200610000441

PATIENT
  Age: 13 Year
  Sex: Male
  Weight: 54.4 kg

DRUGS (2)
  1. STRATTERA [Suspect]
     Indication: ATTENTION DEFICIT/HYPERACTIVITY DISORDER
     Dosage: 25 MG
     Dates: start: 20051001, end: 20060718
  2. ADDERALL (AMFETAMINE ASPARTATE, AMFETAMINE SULFATE, DEXAMFETAMINE SACH [Concomitant]

REACTIONS (2)
  - MANIA [None]
  - PSYCHOTIC DISORDER [None]
